FAERS Safety Report 23195924 (Version 1)
Quarter: 2023Q4

REPORT INFORMATION
  Report Type: Spontaneous
  Country: NL (occurrence: NL)
  Receive Date: 20231117
  Receipt Date: 20231117
  Transmission Date: 20240109
  Serious: Yes (Other)
  Sender: FDA-Public Use
  Company Number: None

PATIENT
  Age: 69 Year
  Sex: Male
  Weight: 115 kg

DRUGS (3)
  1. SIMVASTATIN [Suspect]
     Active Substance: SIMVASTATIN
     Indication: Blood cholesterol
     Dosage: 1 DOSAGE FORMS DAILY; 1 X PER DAY 1 TABLET, THERAPY END DATE:NASK
     Dates: start: 20230923
  2. PFIZER-BIONTECH COVID-19 VACCINE [Suspect]
     Active Substance: TOZINAMERAN
     Indication: COVID-19 immunisation
     Dosage: DOSE 3 OR MORE, OMICXBB.1.5 12+ YEARS / COVID-19 VACCINE PFIZER XBB.1.5 INJVLST 0.3ML,THERAPY END DA
     Dates: start: 20231006
  3. LEVETIRACETAM [Concomitant]
     Active Substance: LEVETIRACETAM
     Indication: Product used for unknown indication
     Dosage: 2 DOSAGE FORMS DAILY; 1 TABLET 2 X PER DAY
     Dates: start: 20180815

REACTIONS (2)
  - Petit mal epilepsy [Recovering/Resolving]
  - Injection site pain [Not Recovered/Not Resolved]
